FAERS Safety Report 4433345-X (Version None)
Quarter: 2004Q3

REPORT INFORMATION
  Report Type: 
  Country: None (occurrence: None)
  Receive Date: 20040824
  Receipt Date: 20040809
  Transmission Date: 20050211
  Serious: Yes (Death)
  Sender: FDA-Public Use
  Company Number: 207626

PATIENT
  Age: 39 Year
  Sex: Female

DRUGS (1)
  1. HERCEPTIN [Suspect]
     Indication: BREAST CANCER METASTATIC
     Dosage: INTRAVENOUS
     Route: 042
     Dates: start: 20040507

REACTIONS (15)
  - C-REACTIVE PROTEIN INCREASED [None]
  - CARDIAC FAILURE [None]
  - DILATATION VENTRICULAR [None]
  - HEPATIC VEIN THROMBOSIS [None]
  - METASTASES TO LIVER [None]
  - METASTASES TO LYMPH NODES [None]
  - METASTASES TO PLEURA [None]
  - OVARIAN CYST [None]
  - OXYGEN SATURATION DECREASED [None]
  - PLEURAL DISORDER [None]
  - PULMONARY EMBOLISM [None]
  - PULMONARY HAEMORRHAGE [None]
  - PULMONARY HYPERTENSION [None]
  - RIGHT VENTRICULAR FAILURE [None]
  - SINUS TACHYCARDIA [None]
